FAERS Safety Report 9870278 (Version 1)
Quarter: 2014Q1

REPORT INFORMATION
  Report Type: Report from Study
  Country: DE (occurrence: DE)
  Receive Date: 20140205
  Receipt Date: 20140205
  Transmission Date: 20141002
  Serious: Yes (Hospitalization)
  Sender: FDA-Public Use
  Company Number: DE-CELGENEUS-062-21880-14013845

PATIENT
  Age: 73 Year
  Sex: Male
  Weight: 77 kg

DRUGS (8)
  1. REVLIMID [Suspect]
     Indication: PLASMA CELL MYELOMA
     Dosage: 10 MILLIGRAM
     Route: 048
     Dates: start: 20120822
  2. DEXAMETHASONE [Suspect]
     Indication: PLASMA CELL MYELOMA
     Dosage: 40 MILLIGRAM
     Route: 048
     Dates: start: 20120822
  3. GRANULOCYTE COLONY-STIMULATING FACTOR NOS [Suspect]
     Indication: PLASMA CELL MYELOMA
     Route: 058
     Dates: start: 20121231, end: 20130115
  4. ETOPOSIDE [Suspect]
     Indication: PLASMA CELL MYELOMA
     Route: 065
     Dates: start: 20121227, end: 20130115
  5. CARBOPLATIN [Suspect]
     Indication: PLASMA CELL MYELOMA
     Route: 065
     Dates: start: 20121227, end: 20130115
  6. PAMIDRONATE [Concomitant]
     Indication: PROPHYLAXIS
     Dosage: 90 GRAM
     Route: 041
     Dates: start: 20130410
  7. ASPIRINE [Concomitant]
     Indication: THROMBOSIS PROPHYLAXIS
     Dosage: 100 GRAM
     Route: 048
     Dates: start: 20120822
  8. PANTOZOL [Concomitant]
     Indication: PROPHYLAXIS
     Dosage: 40 MILLIGRAM
     Route: 048
     Dates: start: 20120814

REACTIONS (1)
  - Convulsion [Recovered/Resolved]
